FAERS Safety Report 5834694-0 (Version None)
Quarter: 2008Q3

REPORT INFORMATION
  Report Type: 
  Country: None (occurrence: None)
  Receive Date: 20080805
  Receipt Date: 20080721
  Transmission Date: 20090109
  Serious: Yes (Death)
  Sender: FDA-Public Use
  Company Number: FR-GENENTECH-264050

PATIENT
  Age: 8 Year
  Sex: Female

DRUGS (2)
  1. MABTHERA [Suspect]
     Indication: NEPHROTIC SYNDROME
     Dosage: UNK
     Route: 042
  2. ANTICOAGULANT [Concomitant]
     Indication: DRUG USE FOR UNKNOWN INDICATION

REACTIONS (2)
  - LUNG INFECTION [None]
  - PULMONARY FIBROSIS [None]
